FAERS Safety Report 14334202 (Version 2)
Quarter: 2018Q1

REPORT INFORMATION
  Report Type: Spontaneous
  Country: US (occurrence: US)
  Receive Date: 20171228
  Receipt Date: 20180104
  Transmission Date: 20180509
  Serious: No
  Sender: FDA-Public Use
  Company Number: US-BAYER-2017-244854

PATIENT
  Sex: Female

DRUGS (2)
  1. CIPRO [Suspect]
     Active Substance: CIPROFLOXACIN HYDROCHLORIDE
     Indication: EYE SWELLING
     Dosage: 500 MG, BID
     Route: 048
     Dates: start: 20171211, end: 20171218
  2. LEVOTHYROXIN [Concomitant]
     Active Substance: LEVOTHYROXINE
     Indication: THYROID DISORDER
     Dosage: 75 MG, UNK

REACTIONS (1)
  - Eye swelling [Recovering/Resolving]

NARRATIVE: CASE EVENT DATE: 20171211
